FAERS Safety Report 9998874 (Version 1)
Quarter: 2014Q1

REPORT INFORMATION
  Report Type: Spontaneous
  Country: GB (occurrence: GB)
  Receive Date: 20140312
  Receipt Date: 20140312
  Transmission Date: 20141002
  Serious: Yes (Hospitalization, Disabling, Other)
  Sender: FDA-Public Use
  Company Number: GB-MICRO LABS LIMITED-BB2014-00163

PATIENT
  Age: 54 Year
  Sex: Female
  Weight: 81.64 kg

DRUGS (2)
  1. SIMVASTATIN [Suspect]
     Indication: HYPERCHOLESTEROLAEMIA
     Dosage: 40MG. DOSE INCREASED IN 2008
     Route: 048
     Dates: start: 2003, end: 20131204
  2. STARFLOWER OIL [Concomitant]
     Indication: PRODUCT USED FOR UNKNOWN INDICATION
     Route: 065

REACTIONS (6)
  - Pain in extremity [Not Recovered/Not Resolved]
  - Back pain [Recovered/Resolved with Sequelae]
  - Asthenia [Not Recovered/Not Resolved]
  - Fatigue [Recovering/Resolving]
  - Inflammation [Recovered/Resolved]
  - Hypoaesthesia [Not Recovered/Not Resolved]
